FAERS Safety Report 25060500 (Version 1)
Quarter: 2025Q1

REPORT INFORMATION
  Report Type: Spontaneous
  Country: FI (occurrence: FI)
  Receive Date: 20250310
  Receipt Date: 20250310
  Transmission Date: 20250409
  Serious: Yes (Death, Other)
  Sender: JOHNSON AND JOHNSON
  Company Number: FI-JNJFOC-20250306288

PATIENT
  Age: 6 Decade
  Sex: Female

DRUGS (1)
  1. TECVAYLI [Suspect]
     Active Substance: TECLISTAMAB-CQYV
     Indication: Plasma cell myeloma
     Route: 058
     Dates: start: 202502, end: 202502

REACTIONS (3)
  - Sepsis [Fatal]
  - Cerebral haemorrhage [Unknown]
  - Renal failure [Unknown]
